FAERS Safety Report 4348908-X (Version None)
Quarter: 2004Q2

REPORT INFORMATION
  Report Type: 
  Country: None (occurrence: None)
  Receive Date: 20040421
  Receipt Date: 20040107
  Transmission Date: 20050107
  Serious: No
  Sender: FDA-Public Use
  Company Number: 30017825-C593459-1

PATIENT
  Age: 65 Year
  Sex: Male

DRUGS (1)
  1. 5B4974-ICODEXTRIN (EXTRANEAL) 7.5% ICODEXTRIN [Suspect]
     Indication: PERITONEAL DIALYSIS
     Dosage: 7.5% ICODEXTRIN 2L QD IP
     Route: 033
     Dates: start: 20031126

REACTIONS (3)
  - DERMATITIS EXFOLIATIVE [None]
  - DRY SKIN [None]
  - DYSPNOEA [None]
